FAERS Safety Report 6312372-1 (Version None)
Quarter: 2009Q3

REPORT INFORMATION
  Report Type: 
  Country: None (occurrence: None)
  Receive Date: 20090813
  Receipt Date: 20090731
  Transmission Date: 20100115
  Serious: Yes (Hospitalization, Other)
  Sender: FDA-Public Use
  Company Number: 230467K09BRA

PATIENT
  Age: 10 Year

DRUGS (2)
  1. REBIF [Suspect]
     Indication: RELAPSING-REMITTING MULTIPLE SCLEROSIS
     Dosage: 44 MCG, 3 IN 1 WEEKS
     Dates: start: 20051205
  2. TYLENOL [Concomitant]

REACTIONS (4)
  - ANAEMIA [None]
  - HEMIPLEGIA [None]
  - MENINGITIS [None]
  - MULTIPLE SCLEROSIS RELAPSE [None]
